FAERS Safety Report 9865929 (Version 2)
Quarter: 2014Q1

REPORT INFORMATION
  Report Type: Spontaneous
  Country: US (occurrence: US)
  Receive Date: 20140203
  Receipt Date: 20140203
  Transmission Date: 20141002
  Serious: No
  Sender: FDA-Public Use
  Company Number: US-ALLERGAN-1314187US

PATIENT
  Age: 81 Year
  Sex: Female

DRUGS (8)
  1. RESTASIS [Suspect]
     Indication: DRY EYE
     Dosage: 2 GTT, BID
     Route: 047
     Dates: start: 20130906, end: 20130906
  2. RESTASIS [Suspect]
     Dosage: 2 GTT, UNK
     Route: 047
     Dates: start: 20130907, end: 20130907
  3. RESTASIS [Suspect]
     Dosage: 2 GTT, UNK
     Route: 047
     Dates: start: 20130908, end: 20130908
  4. RESTASIS [Suspect]
     Dosage: 2 GTT, UNK
     Route: 047
     Dates: start: 20130909, end: 20130909
  5. RESTASIS [Suspect]
     Dosage: 2 GTT, UNK
     Route: 047
     Dates: start: 20130910, end: 20130910
  6. HEART MEDICATIONS NOS [Concomitant]
     Indication: PRODUCT USED FOR UNKNOWN INDICATION
  7. ASA [Concomitant]
     Indication: PRODUCT USED FOR UNKNOWN INDICATION
  8. PRADAXA [Concomitant]
     Indication: PRODUCT USED FOR UNKNOWN INDICATION

REACTIONS (4)
  - Tinnitus [Recovering/Resolving]
  - Ear haemorrhage [Recovering/Resolving]
  - Ear haemorrhage [Recovering/Resolving]
  - Inappropriate schedule of drug administration [Unknown]
